FAERS Safety Report 25376811 (Version 1)
Quarter: 2025Q2

REPORT INFORMATION
  Report Type: Spontaneous
  Country: AR (occurrence: AR)
  Receive Date: 20250530
  Receipt Date: 20250530
  Transmission Date: 20250716
  Serious: Yes (Other)
  Sender: SANDOZ
  Company Number: AR-SANDOZ-SDZ2024AR095058

PATIENT
  Age: 7 Year
  Sex: Male
  Weight: 17.8 kg

DRUGS (2)
  1. OMNITROPE [Suspect]
     Active Substance: SOMATROPIN
     Indication: Growth hormone deficiency
     Route: 058
     Dates: start: 20241009
  2. OMNITROPE [Suspect]
     Active Substance: SOMATROPIN
     Indication: Growth retardation

REACTIONS (5)
  - Adrenal insufficiency [Unknown]
  - Injection site swelling [Unknown]
  - Injection site scar [Unknown]
  - Administration site pain [Unknown]
  - Product administration error [Unknown]

NARRATIVE: CASE EVENT DATE: 20241110
